FAERS Safety Report 4895580-6 (Version None)
Quarter: 2006Q1

REPORT INFORMATION
  Report Type: 
  Country: None (occurrence: None)
  Receive Date: 20060130
  Receipt Date: 20051228
  Transmission Date: 20060701
  Serious: Yes (Hospitalization)
  Sender: FDA-Public Use
  Company Number: JP-ROCHE-429932

PATIENT
  Age: 54 Year
  Sex: Female

DRUGS (5)
  1. HORIZON [Suspect]
     Indication: STATUS EPILEPTICUS
     Route: 065
     Dates: start: 20050115
  2. HORIZON [Suspect]
     Route: 065
     Dates: start: 20050610
  3. PHENYTOIN [Suspect]
     Indication: STATUS EPILEPTICUS
     Route: 065
     Dates: start: 20050115
  4. VALPROIC ACID [Suspect]
     Indication: STATUS EPILEPTICUS
     Route: 065
     Dates: start: 20050610
  5. PHENOBARBITAL TAB [Concomitant]
     Indication: STATUS EPILEPTICUS
     Dates: start: 20050610

REACTIONS (2)
  - DRUG HYPERSENSITIVITY [None]
  - LIVER DISORDER [None]
